FAERS Safety Report 13329357 (Version 1)
Quarter: 2017Q1

REPORT INFORMATION
  Report Type: Report from Study
  Country: CA (occurrence: CA)
  Receive Date: 20170313
  Receipt Date: 20170313
  Transmission Date: 20170428
  Serious: Yes (Other)
  Sender: FDA-Public Use
  Company Number: CA-JNJFOC-20170310316

PATIENT
  Age: 40 Year
  Sex: Male
  Weight: 84.6 kg

DRUGS (4)
  1. FOLIC ACID. [Concomitant]
     Active Substance: FOLIC ACID
     Route: 048
  2. REMICADE [Suspect]
     Active Substance: INFLIXIMAB
     Indication: CROHN^S DISEASE
     Route: 042
     Dates: start: 20100225
  3. REMICADE [Suspect]
     Active Substance: INFLIXIMAB
     Indication: CROHN^S DISEASE
     Route: 042
     Dates: start: 20170304
  4. METHOTREXATE. [Concomitant]
     Active Substance: METHOTREXATE
     Route: 048

REACTIONS (6)
  - Off label use [Unknown]
  - Vaccination site induration [Recovered/Resolved]
  - Eczema [Not Recovered/Not Resolved]
  - Vaccination site pain [Recovered/Resolved]
  - Product use issue [Unknown]
  - Vaccination site oedema [Recovered/Resolved]

NARRATIVE: CASE EVENT DATE: 20100225
